FAERS Safety Report 6056822-7 (Version None)
Quarter: 2009Q1

REPORT INFORMATION
  Report Type: 
  Country: None (occurrence: None)
  Receive Date: 20090126
  Receipt Date: 20090126
  Transmission Date: 20090719
  Serious: Yes (Disabling, Other)
  Sender: FDA-Public Use
  Company Number: None

PATIENT
  Age: 55 Year
  Sex: Female
  Weight: 54.8852 kg

DRUGS (2)
  1. AZITHROMYCIN [Suspect]
     Indication: PYREXIA
     Dosage: 2 TABLETS AND 1 TABLET 2 ON DAY 1; 1 TAB PO
     Route: 048
     Dates: start: 20090119, end: 20090121
  2. AZITHROMYCIN [Suspect]
     Indication: RESPIRATORY TRACT INFECTION
     Dosage: 2 TABLETS AND 1 TABLET 2 ON DAY 1; 1 TAB PO
     Route: 048
     Dates: start: 20090119, end: 20090121

REACTIONS (9)
  - ASTHENIA [None]
  - CONFUSIONAL STATE [None]
  - DISORIENTATION [None]
  - DYSPNOEA [None]
  - FACE INJURY [None]
  - FALL [None]
  - JOINT SPRAIN [None]
  - LIMB INJURY [None]
  - MUSCULAR WEAKNESS [None]
